FAERS Safety Report 9494453 (Version 1)
Quarter: 2013Q3

REPORT INFORMATION
  Report Type: Spontaneous
  Country: None (occurrence: US)
  Receive Date: 20130903
  Receipt Date: 20130903
  Transmission Date: 20140515
  Serious: Yes (Hospitalization)
  Sender: FDA-Public Use
  Company Number: 2013SP002465

PATIENT
  Age: 78 Year
  Sex: Male

DRUGS (18)
  1. XOPENEX (UNKNOWN FORMULATION) [Suspect]
     Indication: PRODUCT USED FOR UNKNOWN INDICATION
     Route: 055
  2. TAXOTERE [Suspect]
     Indication: CHEMOTHERAPY
     Dates: start: 20121210
  3. SUNITINIB [Suspect]
     Route: 048
     Dates: start: 20121130, end: 20121210
  4. HYDROCHLOROTHIAZIDE [Suspect]
     Route: 048
  5. POTASSIUM CHLORIDE [Suspect]
  6. ADVIL /00109201/ [Suspect]
  7. DASATINIB [Suspect]
     Route: 048
     Dates: start: 20120920, end: 20121031
  8. ABIRATERONE [Suspect]
     Route: 048
     Dates: start: 20120531, end: 20121220
  9. ADVAIR [Suspect]
  10. ASPIRIN [Suspect]
     Route: 048
  11. COMBIVENT [Suspect]
     Route: 055
  12. COREG [Suspect]
     Route: 048
  13. NORCO [Suspect]
  14. ZOMETA [Suspect]
     Route: 042
  15. LUPRON [Suspect]
     Route: 030
  16. CARAFATE [Suspect]
  17. HYDROMORPHONE [Suspect]
  18. AUGMENTIN                          /00756801/ [Concomitant]
     Route: 048

REACTIONS (7)
  - Stomatitis [Recovered/Resolved]
  - Neutropenia [Recovered/Resolved]
  - Metastatic neoplasm [Unknown]
  - Fatigue [Recovered/Resolved]
  - Urinary tract infection [Unknown]
  - Prostatic specific antigen increased [Unknown]
  - Pyrexia [Unknown]
